FAERS Safety Report 11217124 (Version 3)
Quarter: 2015Q3

REPORT INFORMATION
  Report Type: Report from Study
  Country: US (occurrence: US)
  Receive Date: 20150624
  Receipt Date: 20150727
  Transmission Date: 20151125
  Serious: No
  Sender: FDA-Public Use
  Company Number: US-GILEAD-2015-0159780

PATIENT
  Age: 58 Year
  Sex: Female

DRUGS (1)
  1. LEDIPASVIR/SOFOSBUVIR [Suspect]
     Active Substance: LEDIPASVIR\SOFOSBUVIR
     Indication: CHRONIC HEPATITIS C
     Dosage: 1 DF, QD
     Route: 048
     Dates: start: 20150526

REACTIONS (13)
  - Headache [Not Recovered/Not Resolved]
  - Decreased activity [Unknown]
  - Visual impairment [Unknown]
  - Diarrhoea [Not Recovered/Not Resolved]
  - Poor quality sleep [Unknown]
  - Epistaxis [Unknown]
  - Nausea [Unknown]
  - Rash [Unknown]
  - Dyspnoea [Unknown]
  - Decreased appetite [Unknown]
  - Constipation [Unknown]
  - Arthritis [Not Recovered/Not Resolved]
  - Depression [Not Recovered/Not Resolved]

NARRATIVE: CASE EVENT DATE: 201506
